FAERS Safety Report 9929941 (Version 2)
Quarter: 2014Q1

REPORT INFORMATION
  Report Type: Spontaneous
  Country: DE (occurrence: DE)
  Receive Date: 20140227
  Receipt Date: 20140227
  Transmission Date: 20141002
  Serious: Yes (Congenital Anomaly, Other)
  Sender: FDA-Public Use
  Company Number: PHHY2011DE16170

PATIENT
  Sex: Female

DRUGS (1)
  1. CANDESARTAN CILEXETIL [Suspect]
     Dosage: UNK
     Route: 064

REACTIONS (22)
  - Foetal growth restriction [Unknown]
  - Skull malformation [Unknown]
  - Kidney enlargement [Unknown]
  - Hypertension [Unknown]
  - Renal failure [Unknown]
  - Renal impairment [Unknown]
  - Anuria [Unknown]
  - Premature baby [Unknown]
  - Low birth weight baby [Unknown]
  - Oliguria [Unknown]
  - Ultrasound kidney abnormal [Unknown]
  - Head circumference abnormal [Unknown]
  - Facial asymmetry [Unknown]
  - Small for dates baby [Unknown]
  - Inguinal hernia [Unknown]
  - Renal hypertension [Unknown]
  - Patent ductus arteriosus [Unknown]
  - Renal dysplasia [Unknown]
  - Renal aplasia [Unknown]
  - Failure to thrive [Unknown]
  - Foetal exposure during pregnancy [Unknown]
  - Congenital cystic kidney disease [Unknown]
